FAERS Safety Report 16338154 (Version 1)
Quarter: 2019Q2

REPORT INFORMATION
  Report Type: Spontaneous
  Country: HR (occurrence: HR)
  Receive Date: 20190521
  Receipt Date: 20190521
  Transmission Date: 20190711
  Serious: Yes (Other)
  Sender: FDA-Public Use
  Company Number: HR-JNJFOC-20190521272

PATIENT
  Sex: Female

DRUGS (2)
  1. BIPERIDEN [Suspect]
     Active Substance: BIPERIDEN
     Indication: PRODUCT USED FOR UNKNOWN INDICATION
     Route: 045
     Dates: start: 20181228, end: 20181228
  2. HALOPERIDOL. [Suspect]
     Active Substance: HALOPERIDOL
     Indication: PRODUCT USED FOR UNKNOWN INDICATION
     Route: 045
     Dates: start: 20181228, end: 20181228

REACTIONS (3)
  - Drug abuse [Unknown]
  - Product use issue [Unknown]
  - Euphoric mood [Unknown]

NARRATIVE: CASE EVENT DATE: 20181228
